FAERS Safety Report 14030402 (Version 3)
Quarter: 2019Q2

REPORT INFORMATION
  Report Type: Report from Study
  Country: BR (occurrence: BR)
  Receive Date: 20171002
  Receipt Date: 20190409
  Transmission Date: 20190711
  Serious: Yes (Hospitalization, Other)
  Sender: FDA-Public Use
  Company Number: PHHY2017BR142501

PATIENT
  Age: 75 Year
  Sex: Female
  Weight: 80 kg

DRUGS (7)
  1. DAXAS [Concomitant]
     Active Substance: ROFLUMILAST
     Indication: ASTHMA
     Dosage: 1 DF, QD (10 DAYS AGO)
     Route: 048
  2. FUROSEMIDE. [Concomitant]
     Active Substance: FUROSEMIDE
     Indication: HYPERTENSION
     Dosage: 1 DF, QD
     Route: 048
  3. FORASEQ [Suspect]
     Active Substance: BUDESONIDE\FORMOTEROL FUMARATE
     Indication: LUNG DISORDER
     Dosage: 1 DF (FORMOTEROL FUMARATE 12 UG, BUDESONIDE 400 UG), BID (IN THE MORNING AND AT NIGHT)
     Route: 055
  4. SEEBRI BREEZHALER [Suspect]
     Active Substance: GLYCOPYRROLATE
     Indication: LUNG DISORDER
     Dosage: 1 DF, QD (SINCE 2 YEARS AGO)
     Route: 055
  5. LOSARTAN. [Concomitant]
     Active Substance: LOSARTAN
     Indication: HYPERTENSION
     Dosage: 1 DF, BID
     Route: 048
  6. NITRENDIPINE [Concomitant]
     Active Substance: NITRENDIPINE
     Indication: HYPERTENSION
     Dosage: 2 DF, BID
     Route: 048
  7. ETNA [Concomitant]
     Active Substance: UNSPECIFIED INGREDIENT
     Indication: PRODUCT USED FOR UNKNOWN INDICATION
     Dosage: 1 DF, BID (ONE YEAR AGO)
     Route: 048

REACTIONS (23)
  - Diabetes mellitus [Recovering/Resolving]
  - Accident [Recovered/Resolved]
  - Fall [Unknown]
  - Lung disorder [Unknown]
  - Condition aggravated [Unknown]
  - Malaise [Unknown]
  - Flatulence [Unknown]
  - Abdominal distension [Unknown]
  - Pneumonia [Recovering/Resolving]
  - Oxygen consumption decreased [Unknown]
  - Blood triglycerides increased [Unknown]
  - Limb injury [Recovered/Resolved]
  - Rib fracture [Unknown]
  - Fatigue [Not Recovered/Not Resolved]
  - Tension [Unknown]
  - Contusion [Recovered/Resolved]
  - Product use in unapproved indication [Unknown]
  - Pain [Unknown]
  - Blood uric acid increased [Unknown]
  - Device use issue [Unknown]
  - Hyperglycaemia [Unknown]
  - Zika virus infection [Recovering/Resolving]
  - Constipation [Unknown]

NARRATIVE: CASE EVENT DATE: 201606
